FAERS Safety Report 6523879-6 (Version None)
Quarter: 2009Q4

REPORT INFORMATION
  Report Type: 
  Country: None (occurrence: None)
  Receive Date: 20091230
  Receipt Date: 20091230
  Transmission Date: 20100525
  Serious: No
  Sender: FDA-Public Use
  Company Number: None

PATIENT
  Age: 52 Year
  Sex: Female
  Weight: 86.1834 kg

DRUGS (1)
  1. LEVOTHYROXINE SODIUM [Suspect]
     Indication: HYPOTHYROIDISM
     Dosage: 1 125 MCG TABLET DAILY PO
     Route: 048
     Dates: start: 20091209, end: 20091214

REACTIONS (6)
  - ALOPECIA [None]
  - DRUG INEFFECTIVE [None]
  - EYE DISORDER [None]
  - FEELING ABNORMAL [None]
  - ONYCHOCLASIS [None]
  - PRODUCT SUBSTITUTION ISSUE [None]
